FAERS Safety Report 8322441-2 (Version None)
Quarter: 2012Q2

REPORT INFORMATION
  Report Type: 
  Country: None (occurrence: None)
  Receive Date: 20120430
  Receipt Date: 20120416
  Transmission Date: 20120825
  Serious: Yes (Hospitalization)
  Sender: FDA-Public Use
  Company Number: US-ROCHE-1051840

PATIENT
  Sex: Male
  Weight: 68 kg

DRUGS (11)
  1. LEVOFLOXACIN [Concomitant]
     Route: 048
     Dates: start: 20120314
  2. LISINOPRIL [Concomitant]
     Route: 048
     Dates: start: 20100101
  3. VEMURAFENIB [Suspect]
     Route: 048
     Dates: start: 20120404
  4. DEXAMETHASONE [Suspect]
     Indication: METASTASES TO CENTRAL NERVOUS SYSTEM
     Route: 048
     Dates: start: 20120202
  5. OMEPRAZOLE [Concomitant]
     Indication: PROPHYLAXIS
     Route: 048
     Dates: start: 20120202, end: 20120208
  6. ZANTAC [Concomitant]
     Indication: PROPHYLAXIS
     Route: 048
     Dates: start: 20120101
  7. ACETAMINOPHEN [Concomitant]
     Dosage: AS REQUIRED
     Route: 048
     Dates: start: 20010101
  8. VICODIN [Concomitant]
     Dosage: TOTAL DAILY DOSE: 500/50MG AS REQUIRED
     Route: 048
     Dates: start: 20120101
  9. VEMURAFENIB [Suspect]
     Indication: MALIGNANT MELANOMA
     Dosage: LAST DOSE PRIOR TO SAE ON 14/MAR/2012
     Route: 048
     Dates: start: 20120208, end: 20120314
  10. OMEPRAZOLE [Concomitant]
     Dates: start: 20120208
  11. KEPPRA [Concomitant]
     Indication: PROPHYLAXIS
     Route: 048
     Dates: start: 20120201

REACTIONS (2)
  - BRAIN ABSCESS [None]
  - HAEMORRHAGE INTRACRANIAL [None]
